FAERS Safety Report 9471322 (Version 1)
Quarter: 2013Q3

REPORT INFORMATION
  Report Type: Spontaneous
  Country: FR (occurrence: FR)
  Receive Date: 20130822
  Receipt Date: 20130822
  Transmission Date: 20140515
  Serious: Yes (Life-Threatening)
  Sender: FDA-Public Use
  Company Number: FR-PFIZER INC-2013239620

PATIENT
  Age: 27 Year
  Sex: Female

DRUGS (3)
  1. XANAX [Suspect]
     Indication: ANAESTHETIC PREMEDICATION
     Dosage: 1 DF, 1X/DAY
     Route: 048
     Dates: start: 20130618, end: 2013
  2. AZANTAC [Suspect]
     Indication: ANAESTHETIC PREMEDICATION
     Dosage: 1 DF, 1X/DAY
     Route: 048
     Dates: start: 20130618, end: 2013
  3. BETADINE SCRUB [Concomitant]
     Dosage: UNK
     Route: 061
     Dates: start: 20130618

REACTIONS (2)
  - Bronchospasm [Recovered/Resolved]
  - Anaphylactic shock [Recovered/Resolved]
